FAERS Safety Report 4911621-1 (Version None)
Quarter: 2006Q2

REPORT INFORMATION
  Report Type: 
  Country: None (occurrence: None)
  Receive Date: 20060213
  Receipt Date: 20060130
  Transmission Date: 20061013
  Serious: Yes (Hospitalization)
  Sender: FDA-Public Use
  Company Number: HQWYE645703FEB06

PATIENT
  Age: 71 Year
  Sex: Male

DRUGS (3)
  1. MYLOTARG [Suspect]
     Indication: ACUTE MYELOID LEUKAEMIA
     Dosage: 9 MG/M^2 (17 MG), INTREAVEOUS
     Route: 042
     Dates: start: 20060104, end: 20060104
  2. MYLOTARG [Suspect]
     Indication: ACUTE MYELOID LEUKAEMIA
     Dosage: 9 MG/M^2 (17 MG), INTREAVEOUS
     Route: 042
     Dates: start: 20060117, end: 20060117
  3. IMIPENEM [Concomitant]

REACTIONS (5)
  - EPIDIDYMITIS [None]
  - PYREXIA [None]
  - RASH [None]
  - SCROTAL OEDEMA [None]
  - WHITE BLOOD CELL COUNT DECREASED [None]
